FAERS Safety Report 18072646 (Version 1)
Quarter: 2020Q3

REPORT INFORMATION
  Report Type: Spontaneous
  Country: US (occurrence: US)
  Receive Date: 20200727
  Receipt Date: 20200727
  Transmission Date: 20201103
  Serious: Yes (Other)
  Sender: FDA-Public Use
  Company Number: None

PATIENT

DRUGS (1)
  1. CREST WHITENING SYSTEMS STRIPS +LIGHT WHITE STRIPS GLAMOROUS WHITE NO [Suspect]
     Active Substance: HYDROGEN PEROXIDE
     Dates: start: 2020, end: 2020

REACTIONS (3)
  - Tooth fracture [None]
  - Tooth disorder [None]
  - Toothache [None]

NARRATIVE: CASE EVENT DATE: 20200701
